FAERS Safety Report 10530234 (Version 2)
Quarter: 2014Q4

REPORT INFORMATION
  Report Type: Spontaneous
  Country: FR (occurrence: FR)
  Receive Date: 20141021
  Receipt Date: 20141021
  Transmission Date: 20150528
  Serious: Yes (Other)
  Sender: FDA-Public Use
  Company Number: FR-PFIZER INC-2014259143

PATIENT
  Age: 92 Year
  Sex: Female

DRUGS (20)
  1. RISPERIDON MYLAN [Suspect]
     Active Substance: RISPERIDONE
     Dosage: 0.5 DF, 2X/DAY
     Route: 048
     Dates: start: 20140730
  2. SEROPRAM [Suspect]
     Active Substance: CITALOPRAM HYDROBROMIDE
     Dosage: 1 DF, 1X/DAY
     Route: 042
     Dates: start: 20140718, end: 20140720
  3. SPECIAFOLDINE [Concomitant]
     Active Substance: FOLIC ACID
     Dosage: 5 MG, 1X/DAY
     Route: 048
     Dates: end: 20140717
  4. VALIUM [Suspect]
     Active Substance: DIAZEPAM
     Dosage: 0.25 DF, 1X/DAY
     Route: 058
     Dates: start: 20140713
  5. LOVENOX [Suspect]
     Active Substance: ENOXAPARIN SODIUM
     Dosage: 0.4 ML, 1X/DAY
     Route: 058
     Dates: start: 20140711, end: 20140731
  6. LEVOTHYROX [Concomitant]
     Active Substance: LEVOTHYROXINE
     Dosage: 1 DOSAGE FORM, 1X/DAY
     Route: 048
  7. EFFEXOR LP [Suspect]
     Active Substance: VENLAFAXINE HYDROCHLORIDE
     Dosage: 75 MG, 1X/DAY
     Route: 048
     Dates: start: 20140730
  8. COLCHICINE OPOCALIUM [Suspect]
     Active Substance: COLCHICINE
     Dosage: 0.5 MG, 1X/DAY
     Route: 048
     Dates: start: 20140725, end: 20140731
  9. NORSET [Suspect]
     Active Substance: MIRTAZAPINE
     Dosage: 15 MG, 1X/DAY
     Route: 048
     Dates: start: 20140712, end: 20140718
  10. PANTOPRAZOLE [Concomitant]
     Active Substance: PANTOPRAZOLE SODIUM
     Dosage: 40 MG, 1X/DAY
     Route: 048
  11. LASILIX [Concomitant]
     Active Substance: FUROSEMIDE
     Dosage: 40 MG, 1X/DAY
     Route: 048
     Dates: end: 20140719
  12. AMIODARONE [Concomitant]
     Active Substance: AMIODARONE
     Dosage: 200 MG, 1X/DAY
     Route: 048
  13. ROCEPHINE [Suspect]
     Active Substance: CEFTRIAXONE SODIUM
     Dosage: 1 G, 1X/DAY
     Route: 058
     Dates: start: 20140714, end: 20140722
  14. SEROPRAM [Suspect]
     Active Substance: CITALOPRAM HYDROBROMIDE
     Dosage: 20 MG, 1X/DAY
     Route: 048
     Dates: start: 20140721, end: 20140729
  15. DUROGESIC [Suspect]
     Active Substance: FENTANYL
     Dosage: 1 DOSAGE FORM, EVERY 3 DAYS
     Route: 062
     Dates: start: 20140715
  16. DIFFU K [Concomitant]
     Active Substance: POTASSIUM CHLORIDE
     Dosage: 1 DF, 3X/DAY
     Route: 048
     Dates: end: 20140801
  17. LOXAPAC [Suspect]
     Active Substance: LOXAPINE SUCCINATE
     Dosage: 0.25 DF, 1X/DAY
     Route: 058
     Dates: start: 20140712, end: 20140724
  18. AMOXICILLIN. [Suspect]
     Active Substance: AMOXICILLIN
     Dosage: 1 G, 3X/DAY
     Route: 048
     Dates: start: 20140711, end: 20140713
  19. LAMALINE [Suspect]
     Active Substance: ACETAMINOPHEN\CAFFEINE\OPIUM
     Dosage: 1 DOSAGE FORM, 2X/DAY
     Route: 048
     Dates: start: 20140711, end: 20140716
  20. PARACETAMOL [Concomitant]
     Active Substance: ACETAMINOPHEN
     Dosage: 1 G, 3X/DAY
     Route: 048

REACTIONS (2)
  - Leukopenia [Not Recovered/Not Resolved]
  - Anaemia [Not Recovered/Not Resolved]

NARRATIVE: CASE EVENT DATE: 20140801
